FAERS Safety Report 10366474 (Version 4)
Quarter: 2014Q3

REPORT INFORMATION
  Report Type: Report from Study
  Country: FR (occurrence: FR)
  Receive Date: 20140806
  Receipt Date: 20140915
  Transmission Date: 20150326
  Serious: Yes (Other)
  Sender: FDA-Public Use
  Company Number: FR-JNJFOC-20140700172

PATIENT
  Age: 73 Year
  Sex: Male
  Weight: 60 kg

DRUGS (5)
  1. FUROSEMIDE. [Concomitant]
     Active Substance: FUROSEMIDE
     Route: 048
     Dates: start: 20140502, end: 20140626
  2. IBRUTINIB [Suspect]
     Active Substance: IBRUTINIB
     Indication: CHRONIC LYMPHOCYTIC LEUKAEMIA
     Route: 048
     Dates: start: 20140415, end: 20140515
  3. CORTANCYL [Concomitant]
     Active Substance: PREDNISONE
     Dates: start: 20140606
  4. IBRUTINIB [Suspect]
     Active Substance: IBRUTINIB
     Indication: CHRONIC LYMPHOCYTIC LEUKAEMIA
     Route: 048
     Dates: start: 20140902
  5. IBRUTINIB [Suspect]
     Active Substance: IBRUTINIB
     Indication: CHRONIC LYMPHOCYTIC LEUKAEMIA
     Route: 048
     Dates: start: 20140606

REACTIONS (9)
  - White blood cell count increased [Not Recovered/Not Resolved]
  - Lymphocyte count increased [Not Recovered/Not Resolved]
  - Creatinine renal clearance decreased [Recovering/Resolving]
  - Beta 2 microglobulin increased [Recovered/Resolved with Sequelae]
  - Hepatic enzyme increased [Unknown]
  - Platelet count decreased [Not Recovered/Not Resolved]
  - Renal failure acute [Recovered/Resolved with Sequelae]
  - Haemoglobin decreased [Recovering/Resolving]
  - Diplopia [Unknown]

NARRATIVE: CASE EVENT DATE: 20140520
